FAERS Safety Report 16232563 (Version 2)
Quarter: 2019Q2

REPORT INFORMATION
  Report Type: Spontaneous
  Country: CH (occurrence: CH)
  Receive Date: 20190424
  Receipt Date: 20190503
  Transmission Date: 20190711
  Serious: Yes (Hospitalization)
  Sender: FDA-Public Use
  Company Number: CH-TEVA-2019-CH-1040702

PATIENT
  Age: 82 Year
  Sex: Male

DRUGS (1)
  1. OLMESARTAN-MEDOXOMIL [Suspect]
     Active Substance: OLMESARTAN MEDOXOMIL
     Indication: HYPERTENSION
     Route: 065

REACTIONS (3)
  - Angioedema [Unknown]
  - Visceral oedema [Unknown]
  - Hypotension [Unknown]
